FAERS Safety Report 5690234-0 (Version None)
Quarter: 2008Q2

REPORT INFORMATION
  Report Type: 
  Country: None (occurrence: None)
  Receive Date: 20080401
  Receipt Date: 20080321
  Transmission Date: 20081010
  Serious: Yes (Death, Life-Threatening, Other)
  Sender: FDA-Public Use
  Company Number: HR-ROCHE-554654

PATIENT
  Age: 50 Year
  Sex: Female

DRUGS (1)
  1. XELODA [Suspect]
     Dosage: STRENGTH REPORTED: 4+3 TABL A 500 MG
     Route: 048
     Dates: start: 20080218

REACTIONS (7)
  - COMA [None]
  - DEATH [None]
  - DIARRHOEA [None]
  - FEBRILE NEUTROPENIA [None]
  - NAUSEA [None]
  - SKIN EXFOLIATION [None]
  - VOMITING [None]
